FAERS Safety Report 20074280 (Version 1)
Quarter: 2021Q4

REPORT INFORMATION
  Report Type: Spontaneous
  Country: US (occurrence: None)
  Receive Date: 20211114
  Receipt Date: 20211114
  Transmission Date: 20220303
  Serious: Yes (Death)
  Sender: FDA-Public Use
  Company Number: None

PATIENT
  Age: 54 Year
  Sex: Female

DRUGS (1)
  1. POMALYST [Suspect]
     Active Substance: POMALIDOMIDE
     Dosage: FREQUENCY : DAILY;?
     Route: 048
     Dates: start: 20211008, end: 20211109

REACTIONS (5)
  - Pain in extremity [None]
  - Acute respiratory distress syndrome [None]
  - Septic shock [None]
  - Febrile neutropenia [None]
  - Pneumothorax [None]

NARRATIVE: CASE EVENT DATE: 20211109
